FAERS Safety Report 9951900 (Version 1)
Quarter: 2014Q1

REPORT INFORMATION
  Report Type: Report from Study
  Country: PR (occurrence: PR)
  Receive Date: 20140304
  Receipt Date: 20140304
  Transmission Date: 20141002
  Serious: No
  Sender: FDA-Public Use
  Company Number: PR-ABBVIE-13P-131-1075179-00

PATIENT
  Age: 56 Year
  Sex: Male
  Weight: 99.88 kg

DRUGS (3)
  1. HUMIRA [Suspect]
     Indication: PSORIASIS
     Route: 058
     Dates: start: 201204, end: 20130409
  2. VITAMIN C [Concomitant]
     Indication: PROPHYLAXIS
     Dates: start: 201205
  3. ATENOLOL [Concomitant]
     Indication: HYPERTENSION

REACTIONS (1)
  - Nasopharyngitis [Recovering/Resolving]
